FAERS Safety Report 4708198-2 (Version None)
Quarter: 2005Q3

REPORT INFORMATION
  Report Type: 
  Country: None (occurrence: None)
  Receive Date: 20050707
  Receipt Date: 20050321
  Transmission Date: 20060218
  Serious: Yes (Other)
  Sender: FDA-Public Use
  Company Number: PHEH2005US03468

PATIENT
  Age: 65 Year
  Sex: Male
  Weight: 80 kg

DRUGS (1)
  1. SANDOSTATIN LAR [Suspect]
     Indication: CARCINOID SYNDROME
     Dosage: 30 MG, QMO
     Route: 030
     Dates: start: 20000101

REACTIONS (1)
  - OSTEOPENIA [None]
